FAERS Safety Report 23835100 (Version 1)
Quarter: 2024Q2

REPORT INFORMATION
  Report Type: Spontaneous
  Country: US (occurrence: US)
  Receive Date: 20240509
  Receipt Date: 20240509
  Transmission Date: 20240715
  Serious: No
  Sender: FDA-Public Use
  Company Number: US-ABBVIE-5752216

PATIENT
  Age: 37 Year
  Sex: Male
  Weight: 76 kg

DRUGS (2)
  1. BOTOX [Suspect]
     Active Substance: ONABOTULINUMTOXINA
     Indication: Migraine
     Dosage: TIME INTERVAL: AS NECESSARY: 200 UNITS
     Route: 065
     Dates: start: 202312, end: 202312
  2. BOTOX [Suspect]
     Active Substance: ONABOTULINUMTOXINA
     Indication: Migraine
     Dosage: TIME INTERVAL: AS NECESSARY
     Dates: start: 202403, end: 202403

REACTIONS (3)
  - Migraine [Recovering/Resolving]
  - Intervertebral disc protrusion [Unknown]
  - Lordosis [Unknown]

NARRATIVE: CASE EVENT DATE: 20240301
